FAERS Safety Report 7297402-5 (Version None)
Quarter: 2011Q1

REPORT INFORMATION
  Report Type: 
  Country: None (occurrence: None)
  Receive Date: 20110216
  Receipt Date: 20110203
  Transmission Date: 20110831
  Serious: Yes (Hospitalization, Other)
  Sender: FDA-Public Use
  Company Number: CA-ELI_LILLY_AND_COMPANY-CA201102000975

PATIENT
  Sex: Male

DRUGS (11)
  1. ZYPREXA ZYDIS [Suspect]
     Dosage: 15 MG, EACH EVENING
     Route: 048
     Dates: start: 20070501
  2. ZYPREXA ZYDIS [Suspect]
     Dosage: 20 MG, 1 TABLET UNDER THE TONGUE WITH ONE 5 MG TABLET AT NIGHT
     Route: 048
     Dates: start: 20071101
  3. CELEXA [Concomitant]
     Dosage: 40 MG, DAILY (1/D)
  4. CELEXA [Concomitant]
     Dosage: 60 D/F, DAILY (1/D)
  5. ZYPREXA ZYDIS [Suspect]
     Indication: MAJOR DEPRESSION
     Dosage: 5 MG, 1 IN THE MORNING AND 2 AT BEDTIME
     Route: 048
     Dates: start: 20050401
  6. RISPERDAL [Concomitant]
     Dosage: 2 MG, EACH EVENING
     Route: 048
  7. RIVOTRIL [Concomitant]
     Dosage: 0.5 D/F, 2/D
  8. ACCUPRIL [Concomitant]
     Dosage: 10 MG, UNK
  9. LIPITOR [Concomitant]
     Dosage: 20 MG, UNKNOWN
  10. ZYPREXA ZYDIS [Suspect]
     Dosage: 5 MG, 2/D
     Route: 048
     Dates: start: 20050501
  11. ZYPREXA ZYDIS [Suspect]
     Dosage: 10 MG, EACH EVENING
     Route: 048
     Dates: start: 20051001

REACTIONS (6)
  - TYPE 2 DIABETES MELLITUS [None]
  - OBESITY [None]
  - AORTIC ANEURYSM [None]
  - DYSLIPIDAEMIA [None]
  - WEIGHT INCREASED [None]
  - HYPERTENSION [None]
